FAERS Safety Report 8642933 (Version 3)
Quarter: 2012Q4

REPORT INFORMATION
  Report Type: 
  Country: US (occurrence: US)
  Receive Date: 20120629
  Receipt Date: 20121220
  Transmission Date: 20130627
  Serious: No
  Sender: FDA-Public Use
  Company Number: US-ASTRAZENECA-2012SE40367

PATIENT
  Age: 58 Year
  Sex: Female

DRUGS (2)
  1. TOPROL XL [Suspect]
     Route: 048
  2. TOPROL XL [Suspect]
     Dosage: GENERIC
     Route: 048

REACTIONS (8)
  - Blood pressure increased [Unknown]
  - Therapeutic response unexpected [Unknown]
  - Stress [Unknown]
  - Anxiety [Unknown]
  - Headache [Unknown]
  - Palpitations [Unknown]
  - Off label use [Unknown]
  - Wrong drug administered [Unknown]
